FAERS Safety Report 4947084-X (Version None)
Quarter: 2006Q1

REPORT INFORMATION
  Report Type: 
  Country: None (occurrence: None)
  Receive Date: 20060131
  Receipt Date: 20051213
  Transmission Date: 20060701
  Serious: Yes (Other)
  Sender: FDA-Public Use
  Company Number: 200511567US

PATIENT
  Age: 55 Year
  Sex: Male

DRUGS (3)
  1. KETEK [Suspect]
     Dates: start: 20050217, end: 20050221
  2. PENTOXYVERINE TANNATE/MEPYRAMINE TANNATE/PHENYLEPHRINE TANNATE [Concomitant]
  3. GUAIFENESIN [Concomitant]

REACTIONS (11)
  - ADVERSE EVENT [None]
  - COORDINATION ABNORMAL [None]
  - DIPLOPIA [None]
  - HYPOREFLEXIA [None]
  - MYDRIASIS [None]
  - PARAESTHESIA [None]
  - PHOTOSENSITIVITY REACTION [None]
  - PUPILLARY REFLEX IMPAIRED [None]
  - VISION BLURRED [None]
  - VISUAL BRIGHTNESS [None]
  - VISUAL DISTURBANCE [None]
